FAERS Safety Report 7270895-5 (Version None)
Quarter: 2011Q1

REPORT INFORMATION
  Report Type: 
  Country: None (occurrence: None)
  Receive Date: 20110202
  Receipt Date: 20110121
  Transmission Date: 20110831
  Serious: Yes (Hospitalization)
  Sender: FDA-Public Use
  Company Number: DE-PFIZER INC-2011011655

PATIENT
  Age: 66 Year
  Sex: Male

DRUGS (6)
  1. CONCOR [Concomitant]
     Dosage: 5 MG, UNK
  2. MARCUMAR [Concomitant]
     Dosage: 3 MG, UNK
  3. CORDAREX [Suspect]
     Dosage: UNK
  4. DRONEDARONE [Suspect]
     Indication: ATRIAL FIBRILLATION
     Dosage: 400 MG, 2X/DAY
     Route: 048
     Dates: start: 20100323, end: 20100923
  5. ZOCOR [Concomitant]
     Dosage: 20 MG, UNK
  6. LISINOPRIL [Concomitant]
     Dosage: 20 MG, UNK

REACTIONS (3)
  - LUNG DISORDER [None]
  - ECZEMA [None]
  - PRURITUS GENERALISED [None]
